FAERS Safety Report 12177475 (Version 1)
Quarter: 2016Q1

REPORT INFORMATION
  Report Type: Report from Study
  Country: BR (occurrence: BR)
  Receive Date: 20160314
  Receipt Date: 20160314
  Transmission Date: 20160526
  Serious: Yes (Hospitalization, Other)
  Sender: FDA-Public Use
  Company Number: BR-ABBVIE-15K-020-1382869-00

PATIENT
  Age: 59 Year
  Sex: Male
  Weight: 90 kg

DRUGS (7)
  1. HUMIRA [Suspect]
     Active Substance: ADALIMUMAB
     Dosage: LOADING DOSE
     Route: 058
  2. HUMIRA [Suspect]
     Active Substance: ADALIMUMAB
     Route: 058
  3. MESALAZINE [Concomitant]
     Active Substance: MESALAMINE
     Indication: COLITIS
     Route: 048
     Dates: start: 2012
  4. HUMIRA [Suspect]
     Active Substance: ADALIMUMAB
     Route: 058
     Dates: start: 201506, end: 201512
  5. VITAMIN B12 [Concomitant]
     Active Substance: CYANOCOBALAMIN
     Indication: DRUG THERAPY
     Route: 048
     Dates: start: 20150303
  6. HUMIRA [Suspect]
     Active Substance: ADALIMUMAB
     Indication: COLITIS ULCERATIVE
     Dosage: LOADING DOSE
     Route: 058
     Dates: start: 20141202, end: 20141202
  7. AZATHIOPRINE. [Suspect]
     Active Substance: AZATHIOPRINE
     Indication: COLITIS ULCERATIVE
     Route: 048
     Dates: start: 2013, end: 201512

REACTIONS (13)
  - Tuberculin test positive [Unknown]
  - Granuloma [Unknown]
  - Eosinophil count increased [Recovered/Resolved]
  - Pulmonary tuberculosis [Recovered/Resolved]
  - Asthenia [Unknown]
  - Atelectasis [Unknown]
  - Pleural effusion [Unknown]
  - Cough [Unknown]
  - Asthenia [Recovered/Resolved]
  - Lymphadenopathy mediastinal [Unknown]
  - Pyrexia [Recovered/Resolved]
  - Immunodeficiency [Unknown]
  - Pyrexia [Unknown]

NARRATIVE: CASE EVENT DATE: 20150114
